FAERS Safety Report 5919233-8 (Version None)
Quarter: 2008Q3

REPORT INFORMATION
  Report Type: 
  Country: None (occurrence: None)
  Receive Date: 20080909
  Receipt Date: 20070530
  Transmission Date: 20090109
  Serious: Yes (Hospitalization)
  Sender: FDA-Public Use
  Company Number: 163-20785-07030343

PATIENT
  Age: 72 Year
  Sex: Female

DRUGS (25)
  1. THALOMID [Suspect]
     Indication: MULTIPLE MYELOMA
     Dosage: 50 MG, 1 IN 1 D, ORAL ; 50 MG, 1 IN 1 D, ORAL ; 50 MG, 1 IN 1 D, ORAL
     Route: 048
     Dates: start: 20061026, end: 20061121
  2. THALOMID [Suspect]
     Indication: MULTIPLE MYELOMA
     Dosage: 50 MG, 1 IN 1 D, ORAL ; 50 MG, 1 IN 1 D, ORAL ; 50 MG, 1 IN 1 D, ORAL
     Route: 048
     Dates: start: 20061127, end: 20061223
  3. THALOMID [Suspect]
     Indication: MULTIPLE MYELOMA
     Dosage: 50 MG, 1 IN 1 D, ORAL ; 50 MG, 1 IN 1 D, ORAL ; 50 MG, 1 IN 1 D, ORAL
     Route: 048
     Dates: start: 20061228, end: 20070123
  4. DEXAMETHASONE TAB [Suspect]
     Indication: MULTIPLE MYELOMA
     Dosage: SEE IMAGE
     Dates: start: 20061026, end: 20061029
  5. DEXAMETHASONE TAB [Suspect]
     Indication: MULTIPLE MYELOMA
     Dosage: SEE IMAGE
     Dates: start: 20061127, end: 20061130
  6. DEXAMETHASONE TAB [Suspect]
     Indication: MULTIPLE MYELOMA
     Dosage: SEE IMAGE
     Dates: start: 20061226, end: 20061231
  7. BORTEZOMIB (BORTEZOMIB) [Concomitant]
  8. MELPHALAN (MELPHALAN) [Concomitant]
  9. CISPLATIN [Concomitant]
  10. ADRIAMYCIN PFS [Concomitant]
  11. CYCLOPHOSPHAMIDE [Concomitant]
  12. ETOPOSIDE [Concomitant]
  13. LOVENOX [Concomitant]
  14. ACYCLOVIR [Concomitant]
  15. METOPROLOL TARTRATE [Concomitant]
  16. ARANESP [Concomitant]
  17. SYNTHROID [Concomitant]
  18. MULTIVITAMIN [Concomitant]
  19. DAPSONE [Concomitant]
  20. ZANTAC 150 [Concomitant]
  21. LEVAQUIN [Concomitant]
  22. FOLATE (FOLIC ACID) [Concomitant]
  23. AREDIA [Concomitant]
  24. ACIDOPHILUS (LACTOBACILLUS ACIDOPHILUS) (CAPSULES) [Concomitant]
  25. CALCIUM (CALCIUM) [Concomitant]

REACTIONS (2)
  - ASTHMA [None]
  - DYSPNOEA [None]
